FAERS Safety Report 4589747-4 (Version None)
Quarter: 2005Q1

REPORT INFORMATION
  Report Type: 
  Country: None (occurrence: None)
  Receive Date: 20050223
  Receipt Date: 20050210
  Transmission Date: 20050727
  Serious: Yes (Hospitalization)
  Sender: FDA-Public Use
  Company Number: FR-JNJFOC-20050204735

PATIENT
  Age: 66 Year
  Sex: Female

DRUGS (11)
  1. CONTRAMAL [Suspect]
     Indication: DRUG USE FOR UNKNOWN INDICATION
     Route: 049
  2. DECAPEPTYL [Suspect]
     Indication: DRUG USE FOR UNKNOWN INDICATION
     Route: 058
  3. DANATROL [Suspect]
     Indication: DRUG USE FOR UNKNOWN INDICATION
     Route: 049
  4. ENDOXAN [Suspect]
     Indication: DRUG USE FOR UNKNOWN INDICATION
     Route: 042
  5. BIOCARDE [Suspect]
     Route: 049
  6. BIOCARDE [Suspect]
     Route: 049
  7. BIOCARDE [Suspect]
     Route: 049
  8. BIOCARDE [Suspect]
     Route: 049
  9. BIOCARDE [Suspect]
     Route: 049
  10. BIOCARDE [Suspect]
     Indication: DRUG USE FOR UNKNOWN INDICATION
     Route: 049
  11. CORTANCYL [Suspect]
     Indication: DRUG USE FOR UNKNOWN INDICATION
     Route: 049

REACTIONS (2)
  - CARDIOMYOPATHY [None]
  - PULMONARY OEDEMA [None]
